FAERS Safety Report 24785588 (Version 1)
Quarter: 2024Q4

REPORT INFORMATION
  Report Type: Spontaneous
  Country: US (occurrence: None)
  Receive Date: 20241227
  Receipt Date: 20241227
  Transmission Date: 20250115
  Serious: Yes (Death)
  Sender: Public
  Company Number: None

PATIENT
  Age: 57 Year
  Sex: Male

DRUGS (20)
  1. MYCOPHENOLATE MOFETIL [Suspect]
     Active Substance: MYCOPHENOLATE MOFETIL
     Indication: Lung transplant
     Dosage: 1000 MG TWICE A DAY ORAL ?
     Route: 048
     Dates: start: 20230906
  2. TACROLIMUS [Suspect]
     Active Substance: TACROLIMUS
     Indication: Lung transplant
     Dosage: 0.5 MG TWICE A DAY ORAL?
     Route: 048
     Dates: start: 20230926
  3. ALBUTEROL SULFATE [Concomitant]
     Active Substance: ALBUTEROL SULFATE
     Dates: start: 20231124
  4. Calcium 600 +Vitamin D 400 units [Concomitant]
     Dates: start: 20230926
  5. CALCIUM ACETATE [Concomitant]
     Active Substance: CALCIUM ACETATE
     Dates: start: 20230926
  6. CRESEMBA [Concomitant]
     Active Substance: ISAVUCONAZONIUM SULFATE
     Dates: start: 20241024
  7. ENOXAPARIN [Concomitant]
     Active Substance: ENOXAPARIN
     Dates: start: 20240813
  8. Esomeprazole 40 mg DR [Concomitant]
     Dates: start: 20240926
  9. FLUCONAZOLE [Concomitant]
     Active Substance: FLUCONAZOLE
     Dates: start: 20240926
  10. Ipatropium/albuterol [Concomitant]
     Dates: start: 20241029
  11. METOPROLOL SUCCINATE [Concomitant]
     Active Substance: METOPROLOL SUCCINATE
     Dates: start: 20240926
  12. Mg plus protein 133 mg [Concomitant]
     Dates: start: 20240926
  13. PREDNISONE [Concomitant]
     Active Substance: PREDNISONE
     Dates: start: 20240926
  14. Bactrim 800/160 [Concomitant]
     Dates: start: 20240926
  15. Tab-a-vite with iron [Concomitant]
     Dates: start: 20240926
  16. VALACYCLOVIR HYDROCHLORIDE [Concomitant]
     Active Substance: VALACYCLOVIR HYDROCHLORIDE
     Dates: start: 20240926
  17. VORICONAZOLE [Concomitant]
     Active Substance: VORICONAZOLE
     Dates: start: 20241002
  18. Voriconazole 50 mg [Concomitant]
     Dates: start: 20241018
  19. Warfarin 1mg [Concomitant]
     Dates: start: 20240227
  20. WARFARIN [Concomitant]
     Active Substance: WARFARIN
     Dates: start: 20240429

REACTIONS (2)
  - Lung transplant [None]
  - Death [None]
